FAERS Safety Report 5406346-2 (Version None)
Quarter: 2007Q3

REPORT INFORMATION
  Report Type: 
  Country: None (occurrence: None)
  Receive Date: 20070806
  Receipt Date: 20070726
  Transmission Date: 20080115
  Serious: No
  Sender: FDA-Public Use
  Company Number: BR-SANOFI-SYNTHELABO-A01200707292

PATIENT
  Sex: Female

DRUGS (8)
  1. ELOXATIN [Suspect]
     Indication: COLORECTAL CANCER
     Route: 042
     Dates: start: 20070131, end: 20070131
  2. MAGNESIUM SULFATE [Concomitant]
     Dosage: 5 ML
     Route: 042
  3. CALCIUM GLUCONATE [Concomitant]
     Dosage: 5 ML
     Route: 042
  4. DEXAMETHASONE 0.5MG TAB [Concomitant]
     Dosage: 10 MG
     Route: 042
  5. KYTRIL [Concomitant]
     Dosage: 1 MG
     Route: 042
  6. LEUCOVORIN CALCIUM [Concomitant]
     Route: 042
     Dates: start: 20070131, end: 20070131
  7. FLUOROURACIL [Concomitant]
     Route: 040
     Dates: start: 20070131, end: 20070131
  8. FLUOROURACIL [Concomitant]
     Route: 041
     Dates: start: 20070131, end: 20070201

REACTIONS (10)
  - COUGH [None]
  - DYSPNOEA [None]
  - ERYTHEMA [None]
  - EYE PRURITUS [None]
  - OCULAR HYPERAEMIA [None]
  - PRURITUS [None]
  - SNEEZING [None]
  - THROAT TIGHTNESS [None]
  - TREMOR [None]
  - URTICARIA [None]
